FAERS Safety Report 14495680 (Version 1)
Quarter: 2018Q1

REPORT INFORMATION
  Report Type: Spontaneous
  Country: US (occurrence: US)
  Receive Date: 20180206
  Receipt Date: 20180206
  Transmission Date: 20180509
  Serious: No
  Sender: FDA-Public Use
  Company Number: US-B.I. PHARMACEUTICALS,INC./RIDGEFIELD-2018-BI-005860

PATIENT
  Sex: Male

DRUGS (1)
  1. COMBIVENT [Suspect]
     Active Substance: ALBUTEROL SULFATE\IPRATROPIUM BROMIDE
     Indication: CHRONIC OBSTRUCTIVE PULMONARY DISEASE
     Dosage: 4 X DAY; STRENGTH: 20 MCG / 100 MCG; FORMULATION: INHALATION SPAY ACTION(S) TAKEN: DOSE NOT CHANGED
     Route: 055
     Dates: start: 2005

REACTIONS (1)
  - Chronic obstructive pulmonary disease [Unknown]
